FAERS Safety Report 8071203-2 (Version None)
Quarter: 2012Q1

REPORT INFORMATION
  Report Type: 
  Country: None (occurrence: None)
  Receive Date: 20120125
  Receipt Date: 20120119
  Transmission Date: 20120608
  Serious: Yes (Other)
  Sender: FDA-Public Use
  Company Number: PHEH2012US000613

PATIENT
  Sex: Female
  Weight: 81.2 kg

DRUGS (10)
  1. VITAMINS NOS [Concomitant]
     Dosage: UNK
  2. THYROID PREPARATIONS [Concomitant]
     Dosage: UNK
  3. GLUCOSAMINE [Concomitant]
     Indication: ARTHRALGIA
     Route: 048
  4. LEVOXYL [Concomitant]
     Indication: HYPOTHYROIDISM
     Dosage: 112 UG, DAILY
     Dates: start: 20050901
  5. DIOVAN [Suspect]
     Indication: HYPERTENSION
     Dosage: 80 MG, DAILY
     Route: 048
     Dates: start: 20091101, end: 20101101
  6. NAPROXEN (ALEVE) [Concomitant]
     Indication: PAIN
     Dosage: 220 MG, PRN
     Route: 048
  7. DIOVAN [Suspect]
     Dosage: 40 MG, DAILY
     Route: 048
     Dates: start: 20101101, end: 20110103
  8. IBUPROFEN [Concomitant]
     Dosage: UNK UKN, PRN
  9. ASPIRIN [Concomitant]
     Dosage: 2 DF, DAILY
  10. FISH OIL [Concomitant]
     Indication: CARDIAC DISORDER
     Dosage: 1000 MG, DAILY
     Route: 048

REACTIONS (12)
  - MYALGIA [None]
  - PYREXIA [None]
  - WRONG TECHNIQUE IN DRUG USAGE PROCESS [None]
  - COUGH [None]
  - INFLUENZA LIKE ILLNESS [None]
  - NAUSEA [None]
  - VIRAL INFECTION [None]
  - HEADACHE [None]
  - HEPATOTOXICITY [None]
  - HEPATIC ENZYME INCREASED [None]
  - FATIGUE [None]
  - ABDOMINAL PAIN [None]
